FAERS Safety Report 16194409 (Version 1)
Quarter: 2019Q2

REPORT INFORMATION
  Report Type: Spontaneous
  Country: US (occurrence: US)
  Receive Date: 20190414
  Receipt Date: 20190414
  Transmission Date: 20190711
  Serious: No
  Sender: FDA-Public Use
  Company Number: US-TEVA-2019-US-1033831

PATIENT

DRUGS (1)
  1. TEVA NORTRIPTYLINE [Suspect]
     Active Substance: NORTRIPTYLINE
     Route: 065

REACTIONS (3)
  - Product substitution issue [Unknown]
  - Drug ineffective [Unknown]
  - Headache [Unknown]
